FAERS Safety Report 22109977 (Version 2)
Quarter: 2023Q2

REPORT INFORMATION
  Report Type: Spontaneous
  Country: IN (occurrence: IN)
  Receive Date: 20230317
  Receipt Date: 20230522
  Transmission Date: 20230722
  Serious: Yes (Other)
  Sender: FDA-Public Use
  Company Number: IN-PFIZER INC-PV202300048921

PATIENT
  Age: 49 Year
  Sex: Female

DRUGS (8)
  1. LORLATINIB [Suspect]
     Active Substance: LORLATINIB
     Indication: Non-small cell lung cancer
     Dosage: 100 MG, 1X/DAY
     Route: 048
     Dates: start: 20220905
  2. ZA [Concomitant]
     Dosage: 4MG IV IN 100ML NS IV OVER 20MIN
     Route: 042
  3. LEVERA [LEVETIRACETAM] [Concomitant]
     Dosage: 500 BD
  4. ROSUVASTATIN CALCIUM [Concomitant]
     Active Substance: ROSUVASTATIN CALCIUM
     Dosage: UNK
  5. FENOFIBRATE [Concomitant]
     Active Substance: FENOFIBRATE
     Dosage: UNK
  6. NARCODOL [Concomitant]
  7. ENCICARB [Concomitant]
     Dosage: 1000 MG IN 100ML NS IV OVER 30
     Route: 042
  8. VITAMIN B12 [Concomitant]
     Active Substance: CYANOCOBALAMIN
     Dosage: 1000MCG IV TODAY
     Route: 042

REACTIONS (8)
  - Type 2 diabetes mellitus [Unknown]
  - Dyslipidaemia [Unknown]
  - Pain [Unknown]
  - Neoplasm progression [Unknown]
  - Blood pressure increased [Unknown]
  - Heart rate increased [Unknown]
  - Respiratory rate increased [Unknown]
  - Haemoglobin decreased [Unknown]

NARRATIVE: CASE EVENT DATE: 20230418
